FAERS Safety Report 21337451 (Version 1)
Quarter: 2022Q3

REPORT INFORMATION
  Report Type: Spontaneous
  Country: US (occurrence: None)
  Receive Date: 20220914
  Receipt Date: 20220914
  Transmission Date: 20221027
  Serious: Yes (Hospitalization, Other)
  Sender: FDA-Public Use
  Company Number: None

PATIENT
  Age: 51 Year
  Sex: Male
  Weight: 90 kg

DRUGS (6)
  1. PREDNISONE [Suspect]
     Active Substance: PREDNISONE
     Indication: Allergy prophylaxis
     Dosage: OTHER FREQUENCY : CT SCAN PROTOCOL;?
     Route: 048
     Dates: start: 20220818, end: 20220819
  2. Stents [Concomitant]
  3. PRASUGREL [Concomitant]
     Active Substance: PRASUGREL
  4. ASPIRIN [Concomitant]
     Active Substance: ASPIRIN
  5. METOPROLOL SUCCINATE [Concomitant]
     Active Substance: METOPROLOL SUCCINATE
  6. COLCHICINE [Concomitant]
     Active Substance: COLCHICINE

REACTIONS (1)
  - Pain in extremity [None]

NARRATIVE: CASE EVENT DATE: 20220820
